FAERS Safety Report 5340365-X (Version None)
Quarter: 2007Q2

REPORT INFORMATION
  Report Type: 
  Country: None (occurrence: None)
  Receive Date: 20070405
  Receipt Date: 20070221
  Transmission Date: 20071010
  Serious: No
  Sender: FDA-Public Use
  Company Number: US200612004199

PATIENT
  Age: 57 Year
  Sex: Female

DRUGS (12)
  1. CYMBALTA [Suspect]
     Indication: ANXIETY DISORDER
     Dosage: 30 MG, DAILY (1/D)
     Dates: start: 20061101, end: 20061221
  2. PAXIL [Concomitant]
  3. CONJUGATED ESTROGENS [Concomitant]
  4. PREVACID [Concomitant]
  5. ATENOLOL [Concomitant]
  6. NORVASC [Concomitant]
  7. ADVAIR (FLUTICASONE PROPIONATE, SALMETEROL XINAOFATE) [Concomitant]
  8. SINGULAIR [Concomitant]
  9. ASPIRIN [Concomitant]
  10. ATIVAN [Concomitant]
  11. ALBUTEROL [Concomitant]
  12. LORTAB [Concomitant]

REACTIONS (5)
  - FEAR [None]
  - PAIN [None]
  - SWOLLEN TONGUE [None]
  - URTICARIA [None]
  - WHEEZING [None]
